FAERS Safety Report 4460856-3 (Version None)
Quarter: 2004Q3

REPORT INFORMATION
  Report Type: 
  Country: None (occurrence: None)
  Receive Date: 20040928
  Receipt Date: 20040426
  Transmission Date: 20050211
  Serious: No
  Sender: FDA-Public Use
  Company Number: US-GLAXOSMITHKLINE-A0508435A

PATIENT
  Age: 63 Year
  Sex: Female

DRUGS (6)
  1. ADVAIR DISKUS 100/50 [Suspect]
     Indication: ASTHMA
     Dosage: 1PUFF TWICE PER DAY
     Route: 055
     Dates: start: 20040316
  2. SINGULAIR [Concomitant]
  3. ZOCOR [Concomitant]
  4. MIACALCIN [Concomitant]
     Route: 045
  5. LASIX [Concomitant]
  6. PREVACID [Concomitant]

REACTIONS (1)
  - DYSPNOEA [None]
